FAERS Safety Report 9053860 (Version 1)
Quarter: 2013Q1

REPORT INFORMATION
  Report Type: Spontaneous
  Country: US (occurrence: None)
  Receive Date: 20130201
  Receipt Date: 20130201
  Transmission Date: 20140127
  Serious: No
  Sender: FDA-Public Use
  Company Number: None

PATIENT
  Age: 59 Year
  Sex: Female
  Weight: 70.5 kg

DRUGS (1)
  1. ZOLPIDEM TARTRATE [Suspect]
     Indication: POOR QUALITY SLEEP
     Dosage: 10 MG 1 TABLET AT NIGHT BY MOUTH
     Route: 048
     Dates: start: 20120628, end: 20120701

REACTIONS (6)
  - Depression [None]
  - Anxiety [None]
  - Suicidal ideation [None]
  - No therapeutic response [None]
  - Agoraphobia [None]
  - Impaired work ability [None]
